FAERS Safety Report 5288783-2 (Version None)
Quarter: 2007Q2

REPORT INFORMATION
  Report Type: 
  Country: None (occurrence: None)
  Receive Date: 20070405
  Receipt Date: 20070323
  Transmission Date: 20071010
  Serious: Yes (Hospitalization)
  Sender: FDA-Public Use
  Company Number: US-ELI_LILLY_AND_COMPANY-US200701003824

PATIENT
  Age: 77 Year
  Sex: Male

DRUGS (6)
  1. CYMBALTA [Suspect]
     Indication: DEPRESSION
     Dosage: 60 MG, EACH EVENING
     Route: 048
     Dates: start: 20060501, end: 20060712
  2. CYMBALTA [Suspect]
     Dosage: 60 MG, UNK
     Route: 050
     Dates: start: 20070118, end: 20070118
  3. VIVACTIL [Concomitant]
     Dosage: 10 MG, 4/D
     Route: 050
     Dates: start: 20060713
  4. FLOMAX [Concomitant]
  5. LEVOXYL [Concomitant]
     Indication: THYROID DISORDER
  6. ANTIDEPRESSANTS [Concomitant]

REACTIONS (2)
  - DYSPHAGIA [None]
  - OESOPHAGEAL CARCINOMA [None]
